FAERS Safety Report 10550796 (Version 1)
Quarter: 2014Q4

REPORT INFORMATION
  Report Type: Spontaneous
  Country: US (occurrence: None)
  Receive Date: 20141028
  Receipt Date: 20141028
  Transmission Date: 20150529
  Serious: Yes (Disabling)
  Sender: FDA-Public Use
  Company Number: None

PATIENT
  Age: 60 Year
  Sex: Female
  Weight: 68.04 kg

DRUGS (1)
  1. INVEGA [Suspect]
     Active Substance: PALIPERIDONE
     Indication: BIPOLAR DISORDER
     Dosage: 12
     Route: 048
     Dates: start: 20131015, end: 20140115

REACTIONS (4)
  - Paraesthesia [None]
  - Retching [None]
  - Weight decreased [None]
  - Hypoaesthesia oral [None]

NARRATIVE: CASE EVENT DATE: 20131015
